FAERS Safety Report 23870475 (Version 1)
Quarter: 2024Q2

REPORT INFORMATION
  Report Type: Report from Study
  Country: US (occurrence: US)
  Receive Date: 20240518
  Receipt Date: 20240518
  Transmission Date: 20240715
  Serious: Yes (Hospitalization, Other)
  Sender: FDA-Public Use
  Company Number: US-ABBVIE-5762413

PATIENT
  Sex: Male
  Weight: 77.11 kg

DRUGS (1)
  1. CREON [Suspect]
     Active Substance: PANCRELIPASE AMYLASE\PANCRELIPASE LIPASE\PANCRELIPASE PROTEASE
     Indication: Pancreatic failure
     Dosage: 3 CAPSULES IN THE MORNING AND 4 CAPSULE FOR DINNER?FORM STRENGTH: 24000 UNIT
     Route: 048
     Dates: start: 202302, end: 2024

REACTIONS (4)
  - Cardiac ventricular thrombosis [Recovering/Resolving]
  - Cardiac disorder [Recovering/Resolving]
  - Fatigue [Recovering/Resolving]
  - Pancreatic carcinoma [Unknown]

NARRATIVE: CASE EVENT DATE: 20240101
